FAERS Safety Report 8590009-9 (Version None)
Quarter: 2012Q3

REPORT INFORMATION
  Report Type: 
  Country: None (occurrence: None)
  Receive Date: 20120813
  Receipt Date: 20120806
  Transmission Date: 20120928
  Serious: Yes (Hospitalization)
  Sender: FDA-Public Use
  Company Number: US-ROCHE-1099464

PATIENT
  Sex: Female

DRUGS (9)
  1. IBUPROFEN [Concomitant]
     Route: 048
     Dates: start: 19920101
  2. PEGASYS [Suspect]
     Indication: HEPATITIS C
     Route: 058
     Dates: start: 20120802, end: 20120804
  3. BLINDED INX-08189 [Suspect]
     Indication: HEPATITIS C
     Route: 048
     Dates: start: 20120717, end: 20120801
  4. XANAX [Concomitant]
     Indication: ANXIETY
     Route: 048
     Dates: start: 20040101
  5. ENABLEX [Concomitant]
     Route: 048
     Dates: start: 20120401
  6. DACLATASVIR [Suspect]
     Indication: HEPATITIS C
     Route: 048
     Dates: start: 20120717, end: 20120801
  7. TELAPREVIR [Suspect]
     Indication: HEPATITIS C
     Route: 048
     Dates: start: 20120802, end: 20120806
  8. LANTUS [Concomitant]
     Indication: DIABETES MELLITUS
     Route: 048
     Dates: start: 20100101
  9. COPEGUS [Suspect]
     Indication: HEPATITIS C
     Route: 048
     Dates: start: 20120802, end: 20120806

REACTIONS (1)
  - SINUS BRADYCARDIA [None]
